FAERS Safety Report 9635810 (Version 2)
Quarter: 2013Q4

REPORT INFORMATION
  Report Type: Spontaneous
  Country: US (occurrence: None)
  Receive Date: 20131017
  Receipt Date: 20131017
  Transmission Date: 20140711
  Serious: Yes (Death)
  Sender: FDA-Public Use
  Company Number: 2013AP008674

PATIENT
  Age: 48 Year
  Sex: Female

DRUGS (6)
  1. TRAMADOL HYDROCHLORIDE TABLETS [Suspect]
     Route: 048
  2. LAMOTRIGINE TABLETS [Suspect]
     Route: 048
  3. MORPHINE [Suspect]
     Route: 048
  4. MEPROBAMATE [Suspect]
     Route: 048
  5. CARISOPRODOL [Suspect]
     Route: 048
  6. BUTALBITAL [Suspect]
     Route: 048

REACTIONS (1)
  - Drug abuse [None]
